FAERS Safety Report 13300976 (Version 1)
Quarter: 2017Q1

REPORT INFORMATION
  Report Type: Report from Study
  Country: US (occurrence: US)
  Receive Date: 20170307
  Receipt Date: 20170307
  Transmission Date: 20170428
  Serious: No
  Sender: FDA-Public Use
  Company Number: PHEH2017US006705

PATIENT
  Age: 48 Year
  Sex: Female

DRUGS (1)
  1. GILENYA [Suspect]
     Active Substance: FINGOLIMOD HYDROCHLORIDE
     Indication: PRODUCT USED FOR UNKNOWN INDICATION
     Dosage: UNK
     Route: 048
     Dates: start: 20130301

REACTIONS (5)
  - Hypotension [Unknown]
  - Blood cholesterol increased [Unknown]
  - Limb injury [Unknown]
  - Ligament sprain [Unknown]
  - Fatigue [Unknown]

NARRATIVE: CASE EVENT DATE: 20160901
